FAERS Safety Report 8425466-1 (Version None)
Quarter: 2012Q2

REPORT INFORMATION
  Report Type: 
  Country: None (occurrence: None)
  Receive Date: 20120611
  Receipt Date: 20120606
  Transmission Date: 20120825
  Serious: Yes (Hospitalization)
  Sender: FDA-Public Use
  Company Number: JP-BAYER-2012-056496

PATIENT
  Age: 43 Year
  Sex: Female

DRUGS (2)
  1. IPE ROXO+#12288;(SUPPLEMENT) [Concomitant]
  2. NEXAVAR [Suspect]
     Indication: RENAL CELL CARCINOMA
     Route: 048

REACTIONS (1)
  - HEPATIC FUNCTION ABNORMAL [None]
